FAERS Safety Report 15854744 (Version 1)
Quarter: 2019Q1

REPORT INFORMATION
  Report Type: Spontaneous
  Country: US (occurrence: US)
  Receive Date: 20190122
  Receipt Date: 20190122
  Transmission Date: 20190417
  Serious: Yes (Death, Hospitalization, Other)
  Sender: FDA-Public Use
  Company Number: US-ASTRAZENECA-2019SE12457

PATIENT
  Age: 27172 Day
  Sex: Female
  Weight: 122.5 kg

DRUGS (2)
  1. NEXIUM [Suspect]
     Active Substance: ESOMEPRAZOLE MAGNESIUM
     Indication: DYSPEPSIA
     Route: 048
  2. INSULIN [Concomitant]
     Active Substance: INSULIN NOS

REACTIONS (8)
  - Renal failure [Fatal]
  - Hypertension [Unknown]
  - Respiratory arrest [Not Recovered/Not Resolved]
  - Arthritis [Unknown]
  - Cardiac failure congestive [Fatal]
  - Off label use [Unknown]
  - Pulse abnormal [Not Recovered/Not Resolved]
  - Diabetes mellitus [Unknown]

NARRATIVE: CASE EVENT DATE: 20181005
